FAERS Safety Report 12704989 (Version 1)
Quarter: 2016Q3

REPORT INFORMATION
  Report Type: Spontaneous
  Country: US (occurrence: None)
  Receive Date: 20160831
  Receipt Date: 20160831
  Transmission Date: 20161109
  Serious: No
  Sender: FDA-Public Use
  Company Number: None

PATIENT
  Age: 56 Year
  Sex: Female
  Weight: 54.89 kg

DRUGS (1)
  1. PRALUENT [Suspect]
     Active Substance: ALIROCUMAB
     Indication: HYPERLIPIDAEMIA
     Dosage: 75 MG EVERY 14 DAYS SUBCUTANEOUS
     Route: 058

REACTIONS (5)
  - Dizziness [None]
  - Pain [None]
  - Mental impairment [None]
  - Pruritus generalised [None]
  - Nausea [None]

NARRATIVE: CASE EVENT DATE: 20160830
